FAERS Safety Report 12733409 (Version 1)
Quarter: 2016Q3

REPORT INFORMATION
  Report Type: Spontaneous
  Country: US (occurrence: US)
  Receive Date: 20160912
  Receipt Date: 20160912
  Transmission Date: 20161109
  Serious: Yes (Death)
  Sender: FDA-Public Use
  Company Number: US-ACTELION-A-US2016-142092

PATIENT
  Age: 73 Year
  Sex: Male

DRUGS (1)
  1. VENTAVIS [Suspect]
     Active Substance: ILOPROST
     Indication: PULMONARY ARTERIAL HYPERTENSION
     Dosage: 9X/DAILY
     Route: 055
     Dates: start: 20160401

REACTIONS (1)
  - Death [Fatal]

NARRATIVE: CASE EVENT DATE: 20160907
